FAERS Safety Report 8104219-8 (Version None)
Quarter: 2012Q1

REPORT INFORMATION
  Report Type: 
  Country: None (occurrence: None)
  Receive Date: 20120201
  Receipt Date: 20120130
  Transmission Date: 20120608
  Serious: Yes (Hospitalization)
  Sender: FDA-Public Use
  Company Number: US-PFIZER INC-2012016162

PATIENT
  Sex: Female

DRUGS (3)
  1. PROTONIX [Suspect]
     Indication: ULCER
     Dosage: 40 MG, 1X/DAY
     Route: 048
     Dates: start: 20080101
  2. LASIX [Concomitant]
     Indication: OEDEMA
     Dosage: UNK
  3. PREMARIN [Concomitant]
     Dosage: UNK

REACTIONS (5)
  - CELLULITIS [None]
  - BACTERIAL INFECTION [None]
  - HERPES ZOSTER [None]
  - SWELLING FACE [None]
  - GASTRIC DISORDER [None]
